FAERS Safety Report 5376732-8 (Version None)
Quarter: 2007Q2

REPORT INFORMATION
  Report Type: 
  Country: None (occurrence: None)
  Receive Date: 20070629
  Receipt Date: 20070629
  Transmission Date: 20071010
  Serious: No
  Sender: FDA-Public Use
  Company Number: None

PATIENT
  Sex: Female

DRUGS (2)
  1. ALBUTEROL [Suspect]
     Indication: ASTHMA
     Dosage: 1-2 PUFFS Q4 HOURS PO AS NEEDED
     Route: 048
  2. ^STEROIDS^ - UNKNOWN NAME + DOSE [Suspect]

REACTIONS (2)
  - ASTHMA [None]
  - PHARMACEUTICAL PRODUCT COMPLAINT [None]
